FAERS Safety Report 17713247 (Version 1)
Quarter: 2020Q2

REPORT INFORMATION
  Report Type: Spontaneous
  Country: US (occurrence: US)
  Receive Date: 20200427
  Receipt Date: 20200427
  Transmission Date: 20200714
  Serious: Yes (Disabling)
  Sender: FDA-Public Use
  Company Number: None

PATIENT
  Age: 71 Year
  Sex: Female
  Weight: 73.8 kg

DRUGS (10)
  1. ACYCLOVIR 400 MG BID [Concomitant]
  2. HYDROCORTISONE 10 MG IN THE AM, 5 MG IN THE PM [Concomitant]
  3. POTASSIUM CHLORIDE 20 MEQ DAILY [Concomitant]
  4. LEVOFLOXACIN 250 MG DAILY [Concomitant]
  5. YESCARTA [Suspect]
     Active Substance: AXICABTAGENE CILOLEUCEL
     Indication: DIFFUSE LARGE B-CELL LYMPHOMA
     Dates: start: 20200224
  6. FLUDARABINE [Suspect]
     Active Substance: FLUDARABINE PHOSPHATE
     Indication: DIFFUSE LARGE B-CELL LYMPHOMA
     Route: 041
     Dates: start: 20200219, end: 20200221
  7. PANTOPRAZOLE 40 MG DAILY [Concomitant]
  8. ONDANSETRON 4 MG Q8 HOUR PRN NAUSEA [Concomitant]
  9. DOCUSATE 100 MG BID [Concomitant]
  10. POSACONAZOLE 300 MG DAILY [Concomitant]

REACTIONS (1)
  - Optic neuropathy [None]

NARRATIVE: CASE EVENT DATE: 20200407
